FAERS Safety Report 9369835 (Version 1)
Quarter: 2013Q2

REPORT INFORMATION
  Report Type: Spontaneous
  Country: US (occurrence: US)
  Receive Date: 20130626
  Receipt Date: 20130626
  Transmission Date: 20140414
  Serious: Yes (Hospitalization)
  Sender: FDA-Public Use
  Company Number: US-BRISTOL-MYERS SQUIBB COMPANY-19002260

PATIENT
  Age: 58 Year
  Sex: Male

DRUGS (7)
  1. BYDUREON [Suspect]
     Indication: TYPE 2 DIABETES MELLITUS
     Dosage: DEC12-APR13?MAY13
     Route: 058
     Dates: start: 20121212
  2. COUMADIN [Suspect]
  3. SIMVASTATIN [Concomitant]
  4. UROCIT-K [Concomitant]
  5. AMLODIPINE [Concomitant]
  6. LANTUS [Concomitant]
  7. NOVOLOG [Concomitant]

REACTIONS (2)
  - International normalised ratio increased [Recovered/Resolved]
  - Muscle haemorrhage [Unknown]
